FAERS Safety Report 23665951 (Version 3)
Quarter: 2024Q2

REPORT INFORMATION
  Report Type: Spontaneous
  Country: AT (occurrence: AT)
  Receive Date: 20240323
  Receipt Date: 20240425
  Transmission Date: 20240716
  Serious: Yes (Other)
  Sender: FDA-Public Use
  Company Number: AT-AMGEN-AUTSP2024022591

PATIENT
  Age: 35 Year
  Sex: Female
  Weight: 62 kg

DRUGS (63)
  1. FEMARA [Suspect]
     Active Substance: LETROZOLE
     Indication: HER2 positive breast cancer
     Dosage: 2.5 MG, QD (MOST RECENT DOSE PRIOR TO AE 20 JAN 2020)
     Route: 048
     Dates: start: 20180108, end: 20200120
  2. FEMARA [Suspect]
     Active Substance: LETROZOLE
     Dosage: 250 MG, QD (MOST RECENT DOSE PRIOR TO AE 09 JUL 2021)
     Route: 065
     Dates: start: 20201028, end: 20210709
  3. FEMARA [Suspect]
     Active Substance: LETROZOLE
     Dosage: 250 MG, QD (MOST RECENT DOSE PRIOR TO AE 09 JUL 2021)
     Route: 065
     Dates: start: 20230630
  4. TAXOTERE [Suspect]
     Active Substance: DOCETAXEL
     Indication: HER2 positive breast cancer
     Dosage: 75 MG/M2, TIW
     Route: 042
     Dates: start: 20170621, end: 20171115
  5. TAXOTERE [Suspect]
     Active Substance: DOCETAXEL
     Dosage: 25 MG, QD
     Route: 040
     Dates: start: 20200120, end: 20230630
  6. TYKERB [Suspect]
     Active Substance: LAPATINIB DITOSYLATE
     Indication: HER2 positive breast cancer
     Dosage: 250 MG, QD
     Route: 048
     Dates: start: 20201028, end: 20210709
  7. TYKERB [Suspect]
     Active Substance: LAPATINIB DITOSYLATE
     Dosage: 250 MG
     Route: 048
     Dates: start: 20230630
  8. XGEVA [Suspect]
     Active Substance: DENOSUMAB
     Indication: HER2 positive breast cancer
     Dosage: UNK
     Route: 065
     Dates: start: 20170621
  9. XGEVA [Suspect]
     Active Substance: DENOSUMAB
     Dosage: 3.6 MG, Q4W
     Route: 065
     Dates: start: 20180129
  10. KADCYLA [Suspect]
     Active Substance: ADO-TRASTUZUMAB EMTANSINE
     Indication: HER2 positive breast cancer
     Dosage: 8 MG/KG, ONCE EVERY 3 WK (MOST RECENT DOSE PRIOR TO THE EVENT: 23 JUN 2022)
     Route: 065
     Dates: start: 20170621, end: 20170621
  11. KADCYLA [Suspect]
     Active Substance: ADO-TRASTUZUMAB EMTANSINE
     Dosage: 8 MG/KG, ONCE EVERY 3 WK (MOST RECENT DOSE PRIOR TO THE EVENT: 23 JUN 2022)
     Route: 065
     Dates: start: 20170712, end: 20171115
  12. KADCYLA [Suspect]
     Active Substance: ADO-TRASTUZUMAB EMTANSINE
     Dosage: 8 MG/KG, ONCE EVERY 3 WK (MOST RECENT DOSE PRIOR TO THE EVENT: 23 JUN 2022)
     Route: 065
     Dates: start: 20180108, end: 20190127
  13. KADCYLA [Suspect]
     Active Substance: ADO-TRASTUZUMAB EMTANSINE
     Dosage: 208 MG, ONCE EVERY 1 WK (ONCE EVERY 3 WK)
     Route: 040
     Dates: start: 20200120, end: 20200302
  14. KADCYLA [Suspect]
     Active Substance: ADO-TRASTUZUMAB EMTANSINE
     Dosage: 208.8 MG, ONCE EVERY 1 WK (ONCE EVERY 3 WK)
     Route: 040
     Dates: start: 20200120, end: 20200302
  15. KADCYLA [Suspect]
     Active Substance: ADO-TRASTUZUMAB EMTANSINE
     Dosage: 237 MG, ONCE EVERY 1 WK (ONCE EVERY 3 WK)
     Route: 040
     Dates: start: 20200323, end: 20201006
  16. KADCYLA [Suspect]
     Active Substance: ADO-TRASTUZUMAB EMTANSINE
     Dosage: 600 MG/KG, ONCE EVERY 3 WK (MOST RECENT DOSE PRIOR TO THE EVENT: 23 JUN 2022)
     Route: 065
     Dates: start: 20220623
  17. CAPECITABINE [Suspect]
     Active Substance: CAPECITABINE
     Indication: HER2 positive breast cancer
     Dosage: 1000 MG (0.5 UNITS/DAY)
     Route: 048
     Dates: start: 20220623, end: 20230612
  18. ENHERTU [Suspect]
     Active Substance: FAM-TRASTUZUMAB DERUXTECAN-NXKI
     Indication: HER2 positive breast cancer
     Dosage: 360 MG, TIW
     Route: 042
     Dates: start: 20210722, end: 20230703
  19. AROMASIN [Suspect]
     Active Substance: EXEMESTANE
     Indication: HER2 positive breast cancer
     Dosage: UNK
     Route: 048
     Dates: start: 20200120, end: 20230630
  20. ARIMIDEX [Suspect]
     Active Substance: ANASTROZOLE
     Indication: Product used for unknown indication
     Dosage: 1 MG, QD
     Route: 048
     Dates: start: 20230630
  21. HERCEPTIN [Suspect]
     Active Substance: TRASTUZUMAB
     Indication: HER2 positive breast cancer
     Dosage: 8 MG/KG, Q3W
     Route: 040
     Dates: start: 20170621, end: 20170621
  22. HERCEPTIN [Suspect]
     Active Substance: TRASTUZUMAB
     Dosage: 6 MG/KG, Q3W
     Route: 040
     Dates: start: 20170712, end: 20171115
  23. HERCEPTIN [Suspect]
     Active Substance: TRASTUZUMAB
     Dosage: 6 MG/KG, Q3W
     Route: 040
     Dates: start: 20180108, end: 20191127
  24. HERCEPTIN [Suspect]
     Active Substance: TRASTUZUMAB
     Dosage: 600 MG, Q3W
     Route: 058
     Dates: start: 20201028, end: 20210709
  25. HERCEPTIN [Suspect]
     Active Substance: TRASTUZUMAB
     Dosage: 600 MG, Q3W
     Route: 058
     Dates: start: 20220623
  26. PERTUZUMAB [Suspect]
     Active Substance: PERTUZUMAB
     Indication: HER2 positive breast cancer
     Dosage: 840 MG, Q3W
     Route: 040
     Dates: start: 20170621, end: 20170621
  27. PERTUZUMAB [Suspect]
     Active Substance: PERTUZUMAB
     Dosage: 420 MG, Q3W
     Route: 040
     Dates: start: 20170712, end: 20171115
  28. PERTUZUMAB [Suspect]
     Active Substance: PERTUZUMAB
     Dosage: 420 MG, Q3W
     Route: 040
     Dates: start: 20180108, end: 20191127
  29. TUCATINIB [Suspect]
     Active Substance: TUCATINIB
     Indication: HER2 positive breast cancer
     Dosage: 840 MG, ONCE EVERY 3 WK (MOST RECENT DOSE PRIOR TO THE EVENT: 8/JAN/2028)
     Route: 065
     Dates: start: 20170621
  30. TUCATINIB [Suspect]
     Active Substance: TUCATINIB
     Dosage: 420 MG, ONCE EVERY 3 WK (MOST RECENT DOSE PRIOR TO THE EVENT: 8/JAN/2028)
     Route: 065
     Dates: start: 20170712, end: 20171115
  31. TUCATINIB [Suspect]
     Active Substance: TUCATINIB
     Dosage: 420 MG, ONCE EVERY 3 WK (MOST RECENT DOSE PRIOR TO THE EVENT: 8/JAN/2028)
     Route: 065
     Dates: start: 20180108, end: 20191127
  32. TUCATINIB [Suspect]
     Active Substance: TUCATINIB
     Dosage: 150 MG, Q12H
     Route: 048
     Dates: start: 20220623, end: 20230612
  33. DEXABENE [Concomitant]
     Indication: Product used for unknown indication
     Dosage: UNK
     Route: 048
     Dates: start: 20230508, end: 20230515
  34. LIPEGFILGRASTIM [Concomitant]
     Active Substance: LIPEGFILGRASTIM
     Indication: Product used for unknown indication
     Dosage: UNK
     Route: 048
     Dates: start: 20230508, end: 20230515
  35. APREPITANT [Concomitant]
     Active Substance: APREPITANT
     Indication: Product used for unknown indication
     Dosage: ONGOING = CHECKED
     Route: 065
     Dates: start: 20210812
  36. GOSERELIN [Concomitant]
     Active Substance: GOSERELIN
     Indication: HER2 positive breast cancer
     Dosage: 3.6 MG, Q4W
     Route: 058
     Dates: start: 20180108
  37. GOSERELIN [Concomitant]
     Active Substance: GOSERELIN
     Dosage: ONGOING = CHECKED
     Route: 065
     Dates: start: 20180129
  38. GOSERELIN [Concomitant]
     Active Substance: GOSERELIN
     Dosage: UNK
     Route: 048
     Dates: start: 20230508, end: 20230515
  39. CALCIUM CARBONATE\CHOLECALCIFEROL [Concomitant]
     Active Substance: CALCIUM CARBONATE\CHOLECALCIFEROL
     Indication: Product used for unknown indication
     Dosage: UNK
     Route: 048
     Dates: start: 20171025, end: 20230515
  40. DIPHENHYDRAMINE HYDROCHLORIDE [Concomitant]
     Active Substance: DIPHENHYDRAMINE HYDROCHLORIDE
     Indication: Product used for unknown indication
     Dosage: UNK
     Route: 048
     Dates: start: 20230508, end: 20230515
  41. FENTANYL [Concomitant]
     Active Substance: FENTANYL\FENTANYL CITRATE
     Indication: Product used for unknown indication
     Dosage: UNK
     Route: 065
  42. PROPOFOL [Concomitant]
     Active Substance: PROPOFOL
     Indication: Product used for unknown indication
     Dosage: UNK
     Route: 065
  43. ESOMEPRAZOLE [Concomitant]
     Active Substance: ESOMEPRAZOLE
     Indication: Product used for unknown indication
     Dosage: UNK
     Route: 065
     Dates: start: 20191230
  44. AMOXICILLIN AND CLAVULANATE POTASSIUM [Concomitant]
     Active Substance: AMOXICILLIN\CLAVULANATE POTASSIUM
     Indication: Pneumonia
     Dosage: UNK
     Route: 065
     Dates: start: 20230508, end: 20230515
  45. KETANEST [Concomitant]
     Indication: Product used for unknown indication
     Dosage: UNK
     Route: 065
  46. KETOPROFEN [Concomitant]
     Active Substance: KETOPROFEN
     Indication: Product used for unknown indication
     Dosage: UNK
     Route: 048
     Dates: start: 20230508, end: 20230515
  47. UNASYN [Concomitant]
     Active Substance: AMPICILLIN SODIUM\SULBACTAM SODIUM
     Indication: Pneumonia
     Dosage: UNK
     Route: 048
     Dates: start: 20230507, end: 20230515
  48. LEVETIRACETAM [Concomitant]
     Active Substance: LEVETIRACETAM
     Indication: Product used for unknown indication
     Dosage: ONGOING = CHECKED
     Route: 065
     Dates: start: 20200102
  49. LEVETIRACETAM [Concomitant]
     Active Substance: LEVETIRACETAM
     Dosage: UNK
     Route: 048
     Dates: start: 20230508, end: 20230515
  50. NOVALGIN [Concomitant]
     Indication: Product used for unknown indication
     Dosage: UNK
     Route: 048
     Dates: start: 20230508, end: 20230515
  51. NOVALGIN [Concomitant]
     Dosage: UNK
     Route: 065
     Dates: start: 20180515
  52. LOPERAMIDE HYDROCHLORIDE [Concomitant]
     Active Substance: LOPERAMIDE HYDROCHLORIDE
     Indication: Product used for unknown indication
     Dosage: ONGOING = CHECKED
     Route: 048
     Dates: start: 20201028, end: 20230515
  53. LOPERAMIDE HYDROCHLORIDE [Concomitant]
     Active Substance: LOPERAMIDE HYDROCHLORIDE
     Dosage: UNK
     Route: 048
     Dates: start: 20230508, end: 20230515
  54. ZOFRAN [Concomitant]
     Active Substance: ONDANSETRON HYDROCHLORIDE
     Indication: Product used for unknown indication
     Dosage: UNK
     Route: 048
     Dates: start: 20230508, end: 20230515
  55. ZOFRAN [Concomitant]
     Active Substance: ONDANSETRON HYDROCHLORIDE
     Dosage: UNK
     Route: 048
     Dates: start: 20230508, end: 20230515
  56. ESOMEPRAZOLE [Concomitant]
     Active Substance: ESOMEPRAZOLE
     Indication: Product used for unknown indication
     Dosage: UNK
     Route: 048
     Dates: start: 20170621, end: 20230515
  57. ESOMEPRAZOLE [Concomitant]
     Active Substance: ESOMEPRAZOLE
     Dosage: UNK
     Route: 048
     Dates: start: 20230508, end: 20230515
  58. DEXAMETHASONE [Concomitant]
     Active Substance: DEXAMETHASONE
     Indication: Syncope
     Dosage: UNK
     Route: 065
     Dates: start: 20201111
  59. DEXAMETHASONE [Concomitant]
     Active Substance: DEXAMETHASONE
     Dosage: UNK
     Route: 065
     Dates: start: 20230509
  60. CLOBAZAM [Concomitant]
     Active Substance: CLOBAZAM
     Indication: Epilepsy
     Dosage: ONGOING = CHECKED
     Route: 065
     Dates: start: 20230508
  61. AMOXICILLIN TRIHYDRATE [Concomitant]
     Active Substance: AMOXICILLIN
     Indication: Pneumonia
     Dosage: UNK
     Route: 065
  62. ASCORBIC ACID\CALCIUM PHOSPHATE\CHOLECALCIFEROL\CITRIC ACID MONOHYDRAT [Concomitant]
     Active Substance: ASCORBIC ACID\CALCIUM PHOSPHATE\CHOLECALCIFEROL\CITRIC ACID MONOHYDRATE
     Indication: Product used for unknown indication
     Dosage: UNK
     Route: 048
     Dates: start: 20230508, end: 20230515
  63. KETAMINE HYDROCHLORIDE [Concomitant]
     Active Substance: KETAMINE HYDROCHLORIDE
     Indication: Product used for unknown indication
     Dosage: UNK
     Route: 048
     Dates: start: 20230508, end: 20230515

REACTIONS (1)
  - Cataract [Recovered/Resolved]

NARRATIVE: CASE EVENT DATE: 20230511
